FAERS Safety Report 5888020-1 (Version None)
Quarter: 2008Q3

REPORT INFORMATION
  Report Type: 
  Country: None (occurrence: None)
  Receive Date: 20080917
  Receipt Date: 20080917
  Transmission Date: 20090109
  Serious: Yes (Other)
  Sender: FDA-Public Use
  Company Number: None

PATIENT
  Age: 27 Year
  Sex: Female
  Weight: 46.7205 kg

DRUGS (1)
  1. ZYRTEC [Suspect]
     Indication: ANGIOEDEMA
     Dosage: 10MG ONCE DAILY PO
     Route: 048
     Dates: start: 20071031, end: 20080914

REACTIONS (4)
  - CONTUSION [None]
  - PRURITUS GENERALISED [None]
  - SCRATCH [None]
  - SKIN LACERATION [None]
